FAERS Safety Report 24691481 (Version 1)
Quarter: 2024Q4

REPORT INFORMATION
  Report Type: Report from Study
  Country: BG (occurrence: BG)
  Receive Date: 20241203
  Receipt Date: 20241203
  Transmission Date: 20250115
  Serious: Yes (Other)
  Sender: AKCEA THERAPEUTICS
  Company Number: BG-AKCEA THERAPEUTICS, INC.-2024IS007231

PATIENT

DRUGS (1)
  1. TEGSEDI [Suspect]
     Active Substance: INOTERSEN SODIUM
     Indication: Product used for unknown indication
     Dosage: UNK, QOW
     Route: 058
     Dates: start: 20230201

REACTIONS (11)
  - Spinal fracture [Not Recovered/Not Resolved]
  - Fall [Not Recovered/Not Resolved]
  - Monocyte percentage increased [Unknown]
  - Haematocrit decreased [Unknown]
  - Mean cell volume increased [Unknown]
  - Platelet count decreased [Unknown]
  - Platelet distribution width increased [Unknown]
  - Blood urea increased [Unknown]
  - Lymphocyte percentage decreased [Unknown]
  - Red blood cell count decreased [Unknown]
  - Haemoglobin decreased [Unknown]

NARRATIVE: CASE EVENT DATE: 20241115
